FAERS Safety Report 8277901-X (Version None)
Quarter: 2012Q2

REPORT INFORMATION
  Report Type: 
  Country: None (occurrence: None)
  Receive Date: 20120412
  Receipt Date: 20120402
  Transmission Date: 20120825
  Serious: Yes (Other)
  Sender: FDA-Public Use
  Company Number: US-ELI_LILLY_AND_COMPANY-US201201008443

PATIENT
  Sex: Male

DRUGS (3)
  1. FORTEO [Suspect]
     Indication: OSTEOPOROSIS
     Dosage: 20 UG, QD
     Route: 065
     Dates: start: 20110501
  2. FORTEO [Suspect]
     Dosage: 20 UG, QD
     Route: 065
  3. ASPIRIN [Concomitant]
     Dosage: 81 MG, QD

REACTIONS (1)
  - PROSTATE CANCER [None]
